FAERS Safety Report 25144936 (Version 1)
Quarter: 2025Q2

REPORT INFORMATION
  Report Type: Report from Study
  Country: TW (occurrence: TW)
  Receive Date: 20250401
  Receipt Date: 20250401
  Transmission Date: 20250717
  Serious: Yes (Other)
  Sender: ROCHE
  Company Number: TW-002147023-NVSC2025TW051511

PATIENT
  Age: 79 Year
  Sex: Female

DRUGS (1)
  1. LUCENTIS [Suspect]
     Active Substance: RANIBIZUMAB
     Indication: Neovascular age-related macular degeneration
     Route: 047
     Dates: start: 20231120

REACTIONS (7)
  - Macular degeneration [Unknown]
  - Macular oedema [Unknown]
  - Optical coherence tomography abnormal [Unknown]
  - Epiretinal membrane [Unknown]
  - Macular scar [Unknown]
  - Retinal drusen [Unknown]
  - Visual impairment [Unknown]

NARRATIVE: CASE EVENT DATE: 20240521
